FAERS Safety Report 8157551 (Version 5)
Quarter: 2013Q3

REPORT INFORMATION
  Report Type: Spontaneous
  Country: US (occurrence: US)
  Receive Date: 20110927
  Receipt Date: 20130807
  Transmission Date: 20140515
  Serious: Yes (Other)
  Sender: FDA-Public Use
  Company Number: US-ASTRAZENECA-2011SE12727

PATIENT
  Age: 53 Year
  Sex: Male

DRUGS (25)
  1. SEROQUEL [Suspect]
     Dosage: 100 MG TID AND 200 MG HS
     Route: 048
     Dates: start: 20030912
  2. SEROQUEL [Suspect]
     Dosage: 200 MG QAM AND 300 MG QHS
     Route: 048
     Dates: start: 20030923
  3. SEROQUEL [Suspect]
     Dosage: 100 MG UP TO 5 TABLETS DA
     Route: 048
     Dates: start: 20040121
  4. PROZAC [Concomitant]
     Dates: start: 20030912
  5. TRAZADONE [Concomitant]
     Dates: start: 20030912
  6. TRAZADONE [Concomitant]
     Dosage: 150 MG TAKE 2 TABLETS AT
     Dates: start: 20040121
  7. NEURONTIN [Concomitant]
     Dates: start: 20030912
  8. NEURONTIN [Concomitant]
     Dosage: 100 MG TAKE 1 CAPSULE I N
     Dates: start: 20040121
  9. NEURONTIN [Concomitant]
     Dosage: 300 MG TAKE 1 CAPSULE 4 T
     Dates: start: 20040420
  10. WELLBUTRIN SR [Concomitant]
     Route: 048
     Dates: start: 20030919
  11. WELLBUTRIN SR [Concomitant]
     Dosage: 100 MG LATE AFTERNOON AND 150 MG EVERY MORNING
     Dates: start: 20031001
  12. WELLBUTRIN SR [Concomitant]
     Dosage: 200 MG TAKE 1 TABLET TWIC
     Dates: start: 20040121
  13. HYDROCODONE/APAP [Concomitant]
     Dosage: 5/500 TAKE 1 TABLET EVER
     Dates: start: 20040113
  14. HYDROCODONE/APAP [Concomitant]
     Dosage: 7.5/75 TAKE 1 TABLET EVER
     Dates: start: 20040219
  15. TRIMOX [Concomitant]
     Dosage: TAKE 1 CAPSULE 4 T
  16. CEPHALEXIN [Concomitant]
     Dosage: TAKE 1 CAPSULE EVE
     Dates: start: 20040403
  17. ENDOCET [Concomitant]
     Dosage: 5/325 TAKE 1 TABLET EVER
     Dates: start: 20040404
  18. CARISOPRODOL [Concomitant]
     Dosage: TAKE 1 TABLET BY M
     Dates: start: 20040404
  19. ACETAMINOPHEN/COD [Concomitant]
     Dosage: TAKE 1 TABLET EVER
     Dates: start: 20040422
  20. VIVACTIL [Concomitant]
     Dosage: TAKE 1 TABLET EVER
     Dates: start: 20040424
  21. OXYCONTIN [Concomitant]
  22. SOMA FLEXERIL [Concomitant]
  23. NAPROSYN [Concomitant]
  24. XANAX [Concomitant]
  25. KLONOPIN [Concomitant]

REACTIONS (3)
  - Pancreatitis [Unknown]
  - Diabetic coma [Unknown]
  - Type 2 diabetes mellitus [Unknown]
